FAERS Safety Report 21087291 (Version 1)
Quarter: 2022Q3

REPORT INFORMATION
  Report Type: Spontaneous
  Country: US (occurrence: None)
  Receive Date: 20220714
  Receipt Date: 20220714
  Transmission Date: 20221027
  Serious: Yes (Other)
  Sender: FDA-Public Use
  Company Number: None

PATIENT
  Age: 51 Year
  Sex: Female
  Weight: 65.25 kg

DRUGS (1)
  1. EVUSHELD [Suspect]
     Active Substance: CILGAVIMAB\TIXAGEVIMAB
     Dates: start: 20220615, end: 20220615

REACTIONS (9)
  - Myalgia [None]
  - Asthenia [None]
  - Decreased appetite [None]
  - Pyrexia [None]
  - White blood cell count increased [None]
  - Cough [None]
  - Drug ineffective [None]
  - Hepatic enzyme increased [None]
  - Feeling abnormal [None]

NARRATIVE: CASE EVENT DATE: 20220616
